FAERS Safety Report 8771045 (Version 1)
Quarter: 2012Q4

REPORT INFORMATION
  Report Type: 
  Country: US (occurrence: US)
  Receive Date: 20120906
  Receipt Date: 20120906
  Transmission Date: 20130627
  Serious: No
  Sender: FDA-Public Use
  Company Number: US-PFIZER INC-2012218981

PATIENT
  Age: 56 Year
  Sex: Male
  Weight: 99.77 kg

DRUGS (1)
  1. CHANTIX [Suspect]
     Indication: SMOKING CESSATION THERAPY
     Dosage: 0.5 mg, daily
     Dates: start: 2010, end: 2010

REACTIONS (2)
  - Abnormal dreams [Recovered/Resolved]
  - Abdominal discomfort [Recovered/Resolved]
